FAERS Safety Report 6806560-5 (Version None)
Quarter: 2010Q2

REPORT INFORMATION
  Report Type: 
  Country: None (occurrence: None)
  Receive Date: 20100629
  Receipt Date: 20080408
  Transmission Date: 20101027
  Serious: No
  Sender: FDA-Public Use
  Company Number: US-PFIZER INC-2008014056

PATIENT
  Sex: Male

DRUGS (1)
  1. VIAGRA [Suspect]
     Dates: start: 20080407

REACTIONS (8)
  - CYANOPSIA [None]
  - DRUG INEFFECTIVE [None]
  - ERYTHEMA [None]
  - FLUSHING [None]
  - PAIN [None]
  - PENILE VASCULAR DISORDER [None]
  - PENIS DISORDER [None]
  - SWELLING [None]
